FAERS Safety Report 15786755 (Version 1)
Quarter: 2018Q4

REPORT INFORMATION
  Report Type: Spontaneous
  Country: US (occurrence: US)
  Receive Date: 20181212
  Receipt Date: 20181212
  Transmission Date: 20190205
  Serious: Yes (Hospitalization)
  Sender: FDA-Public Use
  Company Number: None

PATIENT
  Age: 18 Year
  Sex: Male
  Weight: 80.5 kg

DRUGS (9)
  1. PEG/L-ASPARAGINASE [Suspect]
     Active Substance: PEGASPARGASE
  2. DEXAMETHASONE 120MG [Suspect]
     Active Substance: DEXAMETHASONE
     Dates: end: 20181026
  3. THIOGUANINE (6-TG) 0MG [Suspect]
     Active Substance: THIOGUANINE
  4. DAUNORUBICIN 0MG [Suspect]
     Active Substance: DAUNORUBICIN
  5. MERCAPTOPURINE 7200 MG [Suspect]
     Active Substance: MERCAPTOPURINE
     Dates: end: 20181118
  6. CYCLOPHOSPHAMI 0MG [Suspect]
     Active Substance: CYCLOPHOSPHAMIDE
  7. METHOTREXATE 265MG [Suspect]
     Active Substance: METHOTREXATE
     Dates: end: 20181112
  8. VINCRISTINE SULFATE 6MG [Suspect]
     Active Substance: VINCRISTINE SULFATE
     Dates: end: 20181119
  9. DOXORUBICIN 0MG [Suspect]
     Active Substance: DOXORUBICIN

REACTIONS (4)
  - Epistaxis [None]
  - Pancytopenia [None]
  - Platelet transfusion [None]
  - Pneumonia [None]

NARRATIVE: CASE EVENT DATE: 20181126
